FAERS Safety Report 12329730 (Version 1)
Quarter: 2016Q2

REPORT INFORMATION
  Report Type: Spontaneous
  Country: US (occurrence: US)
  Receive Date: 20160503
  Receipt Date: 20160503
  Transmission Date: 20160815
  Serious: No
  Sender: FDA-Public Use
  Company Number: US-BIOMARINAP-US-2016-109713

PATIENT
  Sex: Male
  Weight: 48.53 kg

DRUGS (1)
  1. ALDURAZYME [Suspect]
     Active Substance: LARONIDASE
     Indication: PRODUCT USED FOR UNKNOWN INDICATION
     Dosage: 29 MG, QW
     Route: 041
     Dates: start: 20150924

REACTIONS (1)
  - Catheter site pain [Not Recovered/Not Resolved]
